FAERS Safety Report 23180457 (Version 3)
Quarter: 2024Q1

REPORT INFORMATION
  Report Type: Report from Study
  Country: DE (occurrence: DE)
  Receive Date: 20231114
  Receipt Date: 20240327
  Transmission Date: 20240409
  Serious: Yes (Other)
  Sender: FDA-Public Use
  Company Number: DE-UCBSA-2023024827

PATIENT
  Sex: Female
  Weight: 142 kg

DRUGS (2)
  1. BIMEKIZUMAB [Interacting]
     Active Substance: BIMEKIZUMAB
     Indication: Psoriasis
     Dosage: 320 MILLIGRAM, EV 8 WEEKS
     Route: 058
     Dates: start: 20220812
  2. NOVORAPID [Interacting]
     Active Substance: INSULIN ASPART
     Indication: Diabetes mellitus
     Dosage: 30-100 IU, 3X/DAY (TID)
     Route: 058
     Dates: start: 2021

REACTIONS (3)
  - Insulin resistance [Unknown]
  - Drug interaction [Unknown]
  - Hepatic enzyme increased [Unknown]

NARRATIVE: CASE EVENT DATE: 20220101
